FAERS Safety Report 17688160 (Version 1)
Quarter: 2020Q2

REPORT INFORMATION
  Report Type: Spontaneous
  Country: US (occurrence: US)
  Receive Date: 20200421
  Receipt Date: 20200421
  Transmission Date: 20200714
  Serious: Yes (Other)
  Sender: FDA-Public Use
  Company Number: NVSC2020US105184

PATIENT
  Age: 16 Year
  Sex: Male

DRUGS (1)
  1. MINOCYCLINE [Suspect]
     Active Substance: MINOCYCLINE HYDROCHLORIDE
     Indication: ACNE
     Dosage: 200 MG, QD
     Route: 048

REACTIONS (7)
  - Weight decreased [Recovered/Resolved]
  - Hypothyroidism [Recovered/Resolved]
  - Thyroiditis [Recovered/Resolved]
  - Fatigue [Recovered/Resolved]
  - Palpitations [Recovered/Resolved]
  - Diarrhoea [Recovered/Resolved]
  - Hyperthyroidism [Recovered/Resolved]
